FAERS Safety Report 21641887 (Version 1)
Quarter: 2022Q4

REPORT INFORMATION
  Report Type: Spontaneous
  Country: IE (occurrence: IE)
  Receive Date: 20221125
  Receipt Date: 20221125
  Transmission Date: 20230112
  Serious: Yes (Hospitalization, Other)
  Sender: FDA-Public Use
  Company Number: IE-SUN PHARMACEUTICAL INDUSTRIES LTD-2022R1-365554

PATIENT
  Age: 68 Year
  Sex: Male

DRUGS (1)
  1. CIPROFLOXACIN [Suspect]
     Active Substance: CIPROFLOXACIN
     Indication: Product used for unknown indication
     Dosage: UNK
     Route: 065

REACTIONS (6)
  - Toxic epidermal necrolysis [Recovered/Resolved]
  - Pneumonia [Recovered/Resolved]
  - Dysphagia [Recovered/Resolved]
  - Pancytopenia [Recovered/Resolved]
  - Pneumonia aspiration [Recovering/Resolving]
  - Upper gastrointestinal haemorrhage [Recovered/Resolved]
